FAERS Safety Report 7319829-5 (Version None)
Quarter: 2011Q1

REPORT INFORMATION
  Report Type: 
  Country: None (occurrence: None)
  Receive Date: 20110214
  Receipt Date: 20110207
  Transmission Date: 20110831
  Serious: Yes (Death, Other)
  Sender: FDA-Public Use
  Company Number: 2010SP046284

PATIENT
  Sex: Male
  Weight: 92.9874 kg

DRUGS (3)
  1. PEG-INTRON [Suspect]
     Indication: HEPATITIS C
     Dates: start: 20100724
  2. LITHIUM CARBONATE [Concomitant]
  3. RIBAVIRIN [Suspect]
     Indication: HEPATITIS C
     Dates: start: 20100724

REACTIONS (6)
  - DEHYDRATION [None]
  - ASTHENIA [None]
  - VOMITING [None]
  - WEIGHT DECREASED [None]
  - DIARRHOEA [None]
  - NAUSEA [None]
